FAERS Safety Report 12934957 (Version 9)
Quarter: 2019Q1

REPORT INFORMATION
  Report Type: Report from Study
  Country: DE (occurrence: DE)
  Receive Date: 20161113
  Receipt Date: 20190109
  Transmission Date: 20190417
  Serious: Yes (Other)
  Sender: FDA-Public Use
  Company Number: PHHY2015DE006318

PATIENT
  Age: 31 Year
  Sex: Female

DRUGS (4)
  1. BACLOFEN. [Concomitant]
     Active Substance: BACLOFEN
     Indication: MUSCLE SPASTICITY
     Dosage: 10 MG, UNK
     Route: 065
     Dates: start: 20131107
  2. GILENYA [Suspect]
     Active Substance: FINGOLIMOD HYDROCHLORIDE
     Indication: MULTIPLE SCLEROSIS
     Dosage: UNK, QD
     Route: 048
     Dates: start: 20140624
  3. EMSELEX [Concomitant]
     Active Substance: DARIFENACIN HYDROBROMIDE
     Indication: URGE INCONTINENCE
     Dosage: 7.5 MG, UNK
     Route: 065
     Dates: start: 2011
  4. BUDENOFALK [Concomitant]
     Active Substance: BUDESONIDE
     Indication: CROHN^S DISEASE
     Dosage: 3 MG, UNK
     Route: 065
     Dates: start: 2006

REACTIONS (19)
  - Osteoporosis [Unknown]
  - Gingivitis [Recovered/Resolved]
  - Nasopharyngitis [Recovered/Resolved]
  - Nasopharyngitis [Recovered/Resolved]
  - Oedema peripheral [Unknown]
  - Arthritis [Recovered/Resolved]
  - Urinary tract infection [Unknown]
  - White blood cell count decreased [Unknown]
  - Blood bilirubin decreased [Unknown]
  - Nasopharyngitis [Recovered/Resolved]
  - Respiratory disorder [Unknown]
  - Lymphocyte count increased [Unknown]
  - Lymphocyte count decreased [Unknown]
  - Oropharyngeal pain [Recovered/Resolved]
  - Vitamin B12 deficiency [Unknown]
  - Respiratory fatigue [Unknown]
  - Nephrolithiasis [Recovered/Resolved]
  - Hypertension [Unknown]
  - Intervertebral disc protrusion [Recovered/Resolved]

NARRATIVE: CASE EVENT DATE: 20140808
